FAERS Safety Report 6836341-8 (Version None)
Quarter: 2010Q3

REPORT INFORMATION
  Report Type: 
  Country: None (occurrence: None)
  Receive Date: 20100713
  Receipt Date: 20100709
  Transmission Date: 20110219
  Serious: Yes (Death, Hospitalization)
  Sender: FDA-Public Use
  Company Number: ES-MERCK-1005ESP00049

PATIENT
  Age: 68 Year
  Sex: Female

DRUGS (8)
  1. EMEND [Suspect]
     Indication: VOMITING
     Route: 048
     Dates: start: 20100222, end: 20100415
  2. CISPLATIN [Suspect]
     Indication: LUNG NEOPLASM MALIGNANT
     Route: 065
     Dates: start: 20100222, end: 20100413
  3. ACETYLCYSTEINE [Suspect]
     Route: 048
     Dates: start: 20100420
  4. GEMCITABINE HYDROCHLORIDE [Suspect]
     Indication: LUNG NEOPLASM MALIGNANT
     Route: 065
     Dates: start: 20100222, end: 20100413
  5. OMEPRAZOLE [Suspect]
     Indication: PROPHYLAXIS AGAINST GASTROINTESTINAL ULCER
     Route: 048
     Dates: start: 20100222, end: 20100422
  6. BEVACIZUMAB [Suspect]
     Indication: LUNG NEOPLASM MALIGNANT
     Route: 065
     Dates: start: 20100222, end: 20100413
  7. EBASTINE [Suspect]
     Route: 048
     Dates: start: 20100302
  8. METOCLOPRAMIDE HYDROCHLORIDE [Suspect]
     Indication: VOMITING
     Route: 048
     Dates: start: 20100222, end: 20100422

REACTIONS (1)
  - CEREBRAL HAEMORRHAGE [None]
